FAERS Safety Report 12768951 (Version 1)
Quarter: 2016Q3

REPORT INFORMATION
  Report Type: Spontaneous
  Country: US (occurrence: US)
  Receive Date: 20160921
  Receipt Date: 20160921
  Transmission Date: 20161109
  Serious: Yes (Disabling, Other)
  Sender: FDA-Public Use
  Company Number: US-REGENERON PHARMACEUTICALS, INC.-2016-21619

PATIENT

DRUGS (3)
  1. EYLEA [Suspect]
     Active Substance: AFLIBERCEPT
     Indication: MACULAR OEDEMA
     Dosage: 2 MG MILLIGRAM(S), 2 MG MILLIGRAM(S), EVERY 4 WEEKS, LEFT EYE
     Route: 031
     Dates: start: 20160907, end: 20160907
  2. METFORMIN [Concomitant]
     Active Substance: METFORMIN HYDROCHLORIDE
     Indication: PRODUCT USED FOR UNKNOWN INDICATION
     Dosage: 1000 MG MILLIGRAM(S), UNK
  3. EYLEA [Suspect]
     Active Substance: AFLIBERCEPT
     Indication: RETINAL VEIN OCCLUSION
     Dosage: 2 MG MILLIGRAM(S), EVERY 4 WEEKS, LEFT EYE
     Route: 031
     Dates: start: 20160608

REACTIONS (3)
  - Intraocular pressure increased [Recovered/Resolved]
  - Blindness unilateral [Unknown]
  - Non-infectious endophthalmitis [Unknown]

NARRATIVE: CASE EVENT DATE: 20160907
